FAERS Safety Report 7447592-6 (Version None)
Quarter: 2011Q2

REPORT INFORMATION
  Report Type: 
  Country: None (occurrence: None)
  Receive Date: 20110421
  Receipt Date: 20110407
  Transmission Date: 20111010
  Serious: Yes (Other)
  Sender: FDA-Public Use
  Company Number: JP-2011-10602

PATIENT
  Age: 60 Year
  Sex: Female

DRUGS (8)
  1. CEFAZOLIN [Concomitant]
  2. ERIL (FASUDIL HYDROCHLORIDE) INJECTION [Concomitant]
  3. ATELEC (CILNIDIPINE) TABLET [Concomitant]
  4. BIOFERMIN (BACILLUS SUBTILIS, LACTOBACILLUS ACIDOPHILUS, STREPTOCOCCUS [Concomitant]
  5. PLETAL [Suspect]
     Dosage: 100 MG MILLIGRAM(S), BID, ORAL
     Route: 048
     Dates: start: 20110325, end: 20110327
  6. ACINON (NIZATIDINE) TABLET [Concomitant]
  7. OMEPRAZOLE [Concomitant]
  8. PRIMPERAN INJ [Concomitant]

REACTIONS (3)
  - TACHYCARDIA [None]
  - CARDIAC FAILURE [None]
  - HYPOTENSION [None]
